FAERS Safety Report 7431411-8 (Version None)
Quarter: 2011Q2

REPORT INFORMATION
  Report Type: 
  Country: None (occurrence: None)
  Receive Date: 20110422
  Receipt Date: 20110128
  Transmission Date: 20111010
  Serious: No
  Sender: FDA-Public Use
  Company Number: US-TEVA-265207USA

PATIENT
  Sex: Female
  Weight: 49.94 kg

DRUGS (1)
  1. PLAN B ONE-STEP [Suspect]
     Indication: POST COITAL CONTRACEPTION
     Dosage: 1.5 MILLIGRAM;
     Route: 048
     Dates: start: 20110120, end: 20110120

REACTIONS (5)
  - ACNE [None]
  - FOOD CRAVING [None]
  - BREAST SWELLING [None]
  - NAUSEA [None]
  - ABDOMINAL DISTENSION [None]
